FAERS Safety Report 19805989 (Version 4)
Quarter: 2022Q1

REPORT INFORMATION
  Report Type: Spontaneous
  Country: US (occurrence: US)
  Receive Date: 20210909
  Receipt Date: 20220117
  Transmission Date: 20220424
  Serious: No
  Sender: FDA-Public Use
  Company Number: US-BRISTOL-MYERS SQUIBB COMPANY-BMS-2021-090503

PATIENT
  Age: 48 Year
  Sex: Female
  Weight: 59.87 kg

DRUGS (4)
  1. ORENCIA [Suspect]
     Active Substance: ABATACEPT
     Indication: Rheumatoid arthritis
     Dosage: 125 MILLIGRAM, QWK
     Route: 058
     Dates: start: 20191023, end: 20210701
  2. ORENCIA [Suspect]
     Active Substance: ABATACEPT
     Indication: Rheumatoid arthritis
     Dosage: 125 MILLIGRAM, QWK
     Route: 058
     Dates: start: 20191023, end: 20210701
  3. ORENCIA [Suspect]
     Active Substance: ABATACEPT
     Dosage: 125 MG/ML, ONCE PER WEEK
     Route: 058
     Dates: start: 2019
  4. ORENCIA [Suspect]
     Active Substance: ABATACEPT
     Dosage: 125 MG/ML, ONCE PER WEEK
     Route: 058
     Dates: start: 2019

REACTIONS (5)
  - Fatigue [Unknown]
  - Asthenia [Unknown]
  - Headache [Unknown]
  - Bone pain [Unknown]
  - Cough [Unknown]

NARRATIVE: CASE EVENT DATE: 20191023
